FAERS Safety Report 15607534 (Version 1)
Quarter: 2018Q4

REPORT INFORMATION
  Report Type: Spontaneous
  Country: ZA (occurrence: ZA)
  Receive Date: 20181112
  Receipt Date: 20181112
  Transmission Date: 20190205
  Serious: Yes (Other)
  Sender: FDA-Public Use
  Company Number: ZA-PFIZER INC-2018457267

PATIENT
  Age: 65 Year
  Sex: Female

DRUGS (11)
  1. ONE ALPHA [Suspect]
     Active Substance: ALFACALCIDOL
     Dosage: 0.25 UG, UNK
  2. TREPILINE [AMITRIPTYLINE] [Suspect]
     Active Substance: AMITRIPTYLINE
     Dosage: 25 MG, UNK
  3. ECOTRIN [Suspect]
     Active Substance: ASPIRIN
     Dosage: 81 MG, UNK
  4. PURESIS [Suspect]
     Active Substance: FUROSEMIDE
     Dosage: 40 MG, UNK
  5. ASPAVOR [Suspect]
     Active Substance: ATORVASTATIN
     Dosage: 10 MG, UNK
  6. OMEZ [OMEPRAZOLE] [Suspect]
     Active Substance: OMEPRAZOLE
     Dosage: 20 MG, UNK
  7. HUMALOG MIX50/50 KWIKPEN [Suspect]
     Active Substance: INSULIN LISPRO
  8. PROHEXAL [Suspect]
     Active Substance: FLUOXETINE HYDROCHLORIDE
     Dosage: 20T 20MG, UNK
  9. BILOCOR [Suspect]
     Active Substance: BISOPROLOL FUMARATE
     Dosage: 5 MG, UNK
  10. SERENACE [Suspect]
     Active Substance: HALOPERIDOL
     Dosage: 0.5 MG, UNK
  11. MIRADEP [Suspect]
     Active Substance: MIRTAZAPINE
     Dosage: 15 MG, UNK

REACTIONS (1)
  - Dementia [Unknown]
